FAERS Safety Report 8445676-7 (Version None)
Quarter: 2012Q2

REPORT INFORMATION
  Report Type: 
  Country: None (occurrence: None)
  Receive Date: 20120618
  Receipt Date: 20120608
  Transmission Date: 20120825
  Serious: Yes (Hospitalization)
  Sender: FDA-Public Use
  Company Number: US-ASTRAZENECA-2012SE38724

PATIENT
  Age: 60 Year
  Sex: Female
  Weight: 76.2 kg

DRUGS (1)
  1. SYMBICORT [Suspect]
     Dosage: 160/4.5 MCG TWO TIMES DAILY
     Route: 055

REACTIONS (2)
  - PNEUMONIA [None]
  - NOCTURNAL DYSPNOEA [None]
